FAERS Safety Report 8495807-8 (Version None)
Quarter: 2012Q3

REPORT INFORMATION
  Report Type: 
  Country: None (occurrence: None)
  Receive Date: 20120709
  Receipt Date: 20120702
  Transmission Date: 20120928
  Serious: Yes (Hospitalization)
  Sender: FDA-Public Use
  Company Number: PHEH2012US013086

PATIENT
  Sex: Female

DRUGS (7)
  1. TRILIPIX [Concomitant]
     Dosage: UNK
  2. ACE INHIBITORS [Concomitant]
     Dosage: UNK
  3. BYSTOLIC [Concomitant]
     Dosage: UNK
  4. TEKTURNA [Suspect]
     Indication: HYPERTENSION
     Dosage: 300 MG, DAILY
     Route: 048
     Dates: start: 20081208, end: 20120101
  5. PLENDIL [Concomitant]
     Dosage: UNK
  6. METFORMIN HCL [Concomitant]
     Dosage: UNK
  7. AMARYL [Concomitant]
     Dosage: UNK

REACTIONS (4)
  - ISCHAEMIC STROKE [None]
  - VIITH NERVE PARALYSIS [None]
  - HEMIPARESIS [None]
  - SLOW SPEECH [None]
